FAERS Safety Report 11358823 (Version 1)
Quarter: 2015Q3

REPORT INFORMATION
  Report Type: Spontaneous
  Country: US (occurrence: None)
  Receive Date: 20150807
  Receipt Date: 20150807
  Transmission Date: 20151125
  Serious: Yes (Disabling)
  Sender: FDA-Public Use
  Company Number: None

PATIENT
  Age: 55 Year
  Sex: Male
  Weight: 86.18 kg

DRUGS (6)
  1. CRESTOR [Suspect]
     Active Substance: ROSUVASTATIN CALCIUM
  2. BABY ASPIRIN [Concomitant]
     Active Substance: ASPIRIN
  3. FISH OIL [Concomitant]
     Active Substance: FISH OIL
  4. ZOCOR [Suspect]
     Active Substance: SIMVASTATIN
     Indication: BLOOD CHOLESTEROL INCREASED
     Dosage: 8 YEAR USE, 4 YEARS OFF?VARIOUS LEVELS
     Route: 048
  5. LISINOPRIL. [Concomitant]
     Active Substance: LISINOPRIL
  6. LIPITOR [Suspect]
     Active Substance: ATORVASTATIN CALCIUM

REACTIONS (22)
  - Muscular weakness [None]
  - Myalgia [None]
  - Muscle disorder [None]
  - Urinary tract disorder [None]
  - Seminal vesicular disorder [None]
  - Change of bowel habit [None]
  - Muscle atrophy [None]
  - Ill-defined disorder [None]
  - Depression [None]
  - Mood swings [None]
  - Apathy [None]
  - Myopathy [None]
  - Sleep disorder [None]
  - Cognitive disorder [None]
  - Visual impairment [None]
  - Fatigue [None]
  - Influenza like illness [None]
  - Nausea [None]
  - Crying [None]
  - Arthropathy [None]
  - Tendon disorder [None]
  - Amnesia [None]
